FAERS Safety Report 19846978 (Version 1)
Quarter: 2021Q3

REPORT INFORMATION
  Report Type: Spontaneous
  Country: CN (occurrence: CN)
  Receive Date: 20210917
  Receipt Date: 20210917
  Transmission Date: 20211014
  Serious: Yes (Death, Hospitalization)
  Sender: FDA-Public Use
  Company Number: CN-ROCHE-2913126

PATIENT
  Age: 45 Year
  Sex: Female

DRUGS (2)
  1. GAVRETO [Suspect]
     Active Substance: PRALSETINIB
     Indication: LUNG ADENOCARCINOMA
     Route: 048
     Dates: start: 20210729
  2. GAVRETO [Suspect]
     Active Substance: PRALSETINIB
     Route: 048

REACTIONS (2)
  - Hypertension [Unknown]
  - Disease progression [Fatal]

NARRATIVE: CASE EVENT DATE: 20210729
